FAERS Safety Report 17885455 (Version 1)
Quarter: 2020Q2

REPORT INFORMATION
  Report Type: Spontaneous
  Country: US (occurrence: US)
  Receive Date: 20200611
  Receipt Date: 20200611
  Transmission Date: 20200714
  Serious: Yes (Hospitalization, Other)
  Sender: FDA-Public Use
  Company Number: US-ACELLA PHARMACEUTICALS, LLC-2085660

PATIENT
  Age: 76 Year
  Sex: Male

DRUGS (4)
  1. THIOPENTAL SODIUM. [Suspect]
     Active Substance: THIOPENTAL SODIUM
     Route: 065
  2. LEVETIRACETAM. [Suspect]
     Active Substance: LEVETIRACETAM
     Route: 065
  3. PHENYTOIN SODIUM. [Suspect]
     Active Substance: PHENYTOIN SODIUM
     Indication: STATUS EPILEPTICUS
     Route: 042
  4. LACOSAMIDE. [Suspect]
     Active Substance: LACOSAMIDE
     Route: 065

REACTIONS (2)
  - Haemodynamic instability [Recovered/Resolved]
  - Status epilepticus [Recovered/Resolved]
